FAERS Safety Report 15265795 (Version 3)
Quarter: 2018Q3

REPORT INFORMATION
  Report Type: Spontaneous
  Country: US (occurrence: US)
  Receive Date: 20180810
  Receipt Date: 20180827
  Transmission Date: 20181010
  Serious: No
  Sender: FDA-Public Use
  Company Number: US-UNITED THERAPEUTICS-UNT-2018-012382

PATIENT
  Sex: Male
  Weight: 80.73 kg

DRUGS (7)
  1. SILDENAFIL CITRATE. [Concomitant]
     Active Substance: SILDENAFIL CITRATE
     Indication: PRODUCT USED FOR UNKNOWN INDICATION
     Route: 065
  2. TYVASO [Suspect]
     Active Substance: TREPROSTINIL
     Dosage: 42 ?G
  3. TYVASO [Suspect]
     Active Substance: TREPROSTINIL
     Dosage: 48 ?G
  4. TYVASO [Suspect]
     Active Substance: TREPROSTINIL
     Dosage: 42 ?G, QID
  5. TYVASO [Suspect]
     Active Substance: TREPROSTINIL
     Dosage: 54 ?G
  6. TYVASO [Suspect]
     Active Substance: TREPROSTINIL
     Indication: PULMONARY ARTERIAL HYPERTENSION
     Dosage: UNK
     Dates: start: 20180802
  7. TYVASO [Suspect]
     Active Substance: TREPROSTINIL
     Indication: PULMONARY HYPERTENSION
     Dosage: 18?54 MICROGRAMS, QID
     Dates: start: 20180613

REACTIONS (9)
  - Peripheral swelling [Unknown]
  - Oedema peripheral [Unknown]
  - Paraesthesia [Unknown]
  - Joint swelling [Unknown]
  - Chest discomfort [Recovered/Resolved]
  - Tinnitus [Unknown]
  - Headache [Recovered/Resolved]
  - Insomnia [Unknown]
  - Tendon injury [Unknown]

NARRATIVE: CASE EVENT DATE: 2018
